FAERS Safety Report 8593557 (Version 2)
Quarter: 2013Q3

REPORT INFORMATION
  Report Type: Spontaneous
  Country: US (occurrence: US)
  Receive Date: 20120604
  Receipt Date: 20130723
  Transmission Date: 20140515
  Serious: Yes (Hospitalization, Disabling, Other)
  Sender: FDA-Public Use
  Company Number: US-ASTRAZENECA-2012SE35374

PATIENT
  Age: 61 Year
  Sex: Male

DRUGS (13)
  1. NEXIUM [Suspect]
     Indication: GASTROOESOPHAGEAL REFLUX DISEASE
     Route: 048
  2. ALPRAZOLAM [Concomitant]
  3. POTASSIUM CHLORIDE [Concomitant]
  4. HYDROCODONE [Concomitant]
  5. INDOMETHACIN [Concomitant]
  6. PRAVASTATIN [Concomitant]
  7. DONEPEZIL [Concomitant]
  8. NAMENDA [Concomitant]
  9. PREDNISONE [Concomitant]
  10. COMBIGAN [Concomitant]
  11. LUMIGAN [Concomitant]
  12. CALCIUM PLUS D [Concomitant]
  13. VITAMIN B 12 [Concomitant]

REACTIONS (20)
  - Blindness [Unknown]
  - Wrist fracture [Unknown]
  - Back disorder [Unknown]
  - Cerebrovascular accident [Unknown]
  - Cyst [Unknown]
  - Haemorrhage [Unknown]
  - Neoplasm malignant [Unknown]
  - Osteoporosis [Unknown]
  - Upper limb fracture [Unknown]
  - Tooth fracture [Unknown]
  - Arthritis [Unknown]
  - Cataract [Unknown]
  - Calcium deficiency [Unknown]
  - Peripheral vascular disorder [Unknown]
  - Glaucoma [Unknown]
  - Haemophilia [Unknown]
  - Bone density decreased [Unknown]
  - Rheumatoid arthritis [Unknown]
  - Vitamin D deficiency [Unknown]
  - Depression [Unknown]
